FAERS Safety Report 24164945 (Version 2)
Quarter: 2024Q4

REPORT INFORMATION
  Report Type: Report from Study
  Country: NL (occurrence: NL)
  Receive Date: 20240802
  Receipt Date: 20241007
  Transmission Date: 20250115
  Serious: Yes (Hospitalization)
  Sender: ABBVIE
  Company Number: NL-ABBVIE-5860816

PATIENT
  Sex: Female

DRUGS (6)
  1. CARBIDOPA\LEVODOPA [Suspect]
     Active Substance: CARBIDOPA\LEVODOPA
     Indication: Parkinson^s disease
     Dosage: MD: 4.0 ML, CD: 3.4 ML/H, ED: 2.0 ML, REMAINS AT 16 HOURS
     Route: 050
     Dates: start: 20240725
  2. CARBIDOPA\LEVODOPA [Suspect]
     Active Substance: CARBIDOPA\LEVODOPA
     Route: 050
  3. CARBIDOPA\LEVODOPA [Suspect]
     Active Substance: CARBIDOPA\LEVODOPA
     Dosage: REMAINS AT 16 HOURS
     Route: 050
     Dates: start: 20220207
  4. CARBIDOPA\LEVODOPA [Suspect]
     Active Substance: CARBIDOPA\LEVODOPA
     Dosage: MD: 4.0 ML, CD: 3.4 ML/H, ED: 2.0 ML, REMAINS AT 16 HOURS
     Route: 050
     Dates: start: 20240405, end: 20240725
  5. Ascal [Concomitant]
     Indication: Product used for unknown indication
     Dosage: ACCORDING TO SCHEDULE THROMBOSIS SERVICE
     Dates: start: 200002
  6. BENSERAZIDE HYDROCHLORIDE\LEVODOPA [Concomitant]
     Active Substance: BENSERAZIDE HYDROCHLORIDE\LEVODOPA
     Indication: Product used for unknown indication
     Dosage: ONE TIME TWO TABLETS,
     Route: 048
     Dates: start: 200402

REACTIONS (18)
  - Hip fracture [Recovered/Resolved]
  - Weight decreased [Not Recovered/Not Resolved]
  - Compulsions [Not Recovered/Not Resolved]
  - Hyperkinesia [Recovered/Resolved]
  - Taste disorder [Not Recovered/Not Resolved]
  - Device dislocation [Unknown]
  - Fall [Not Recovered/Not Resolved]
  - Hallucination [Not Recovered/Not Resolved]
  - Dyskinesia [Not Recovered/Not Resolved]
  - Stoma site reaction [Recovered/Resolved]
  - Memory impairment [Not Recovered/Not Resolved]
  - COVID-19 [Recovered/Resolved]
  - Stoma site erythema [Recovered/Resolved]
  - Abnormal dreams [Not Recovered/Not Resolved]
  - Illness [Recovered/Resolved]
  - Decreased appetite [Not Recovered/Not Resolved]
  - On and off phenomenon [Not Recovered/Not Resolved]
  - Hip surgery [Not Recovered/Not Resolved]

NARRATIVE: CASE EVENT DATE: 20240101
